FAERS Safety Report 14166795 (Version 3)
Quarter: 2017Q4

REPORT INFORMATION
  Report Type: Spontaneous
  Country: JP (occurrence: JP)
  Receive Date: 20171107
  Receipt Date: 20171207
  Transmission Date: 20180321
  Serious: Yes (Life-Threatening)
  Sender: FDA-Public Use
  Company Number: JP-OTSUKA-2017_022602

PATIENT
  Sex: Male

DRUGS (13)
  1. BAYASPIRIN [Suspect]
     Active Substance: ASPIRIN
     Dosage: 100 MG, DAILY DOSE
     Route: 048
     Dates: start: 20171018, end: 20171023
  2. NORVASC [Concomitant]
     Active Substance: AMLODIPINE BESYLATE
     Indication: PRODUCT USED FOR UNKNOWN INDICATION
     Dosage: 5 MG, DAILY DOSE
     Route: 048
  3. PARIET [Concomitant]
     Active Substance: RABEPRAZOLE SODIUM
     Indication: PROPHYLAXIS AGAINST GASTROINTESTINAL ULCER
     Dosage: UNK
     Route: 065
  4. BAYASPIRIN [Suspect]
     Active Substance: ASPIRIN
     Indication: PRODUCT USED FOR UNKNOWN INDICATION
     Dosage: 100 MG, DAILY DOSE
     Route: 048
     Dates: start: 201109, end: 20171014
  5. ROZEREM [Concomitant]
     Active Substance: RAMELTEON
     Indication: PRODUCT USED FOR UNKNOWN INDICATION
     Dosage: 8 MG, DAILY DOSE
     Route: 048
  6. THYRADIN S [Concomitant]
     Active Substance: LEVOTHYROXINE SODIUM
     Indication: PRODUCT USED FOR UNKNOWN INDICATION
     Dosage: 50 ?G, DAILY DOSE
     Route: 048
  7. AZILVA [Concomitant]
     Active Substance: AZILSARTAN KAMEDOXOMIL
     Indication: PRODUCT USED FOR UNKNOWN INDICATION
     Dosage: 20 MG, DAILY DOSE
     Route: 048
  8. TAKECAB [Concomitant]
     Active Substance: VONOPRAZAN FUMURATE
     Indication: PRODUCT USED FOR UNKNOWN INDICATION
     Dosage: 20 MG, DAILY DOSE
     Route: 048
  9. PLETAAL OD TABLETS 50MG [Suspect]
     Active Substance: CILOSTAZOL
     Indication: CEREBRAL INFARCTION
     Dosage: 200 MG, DAILY DOSE
     Route: 048
     Dates: start: 201109, end: 20171014
  10. PLETAAL OD TABLETS 50MG [Suspect]
     Active Substance: CILOSTAZOL
     Indication: THROMBOSIS PROPHYLAXIS
     Dosage: 200 MG, DAILY DOSE
     Route: 048
     Dates: start: 20171018, end: 20171023
  11. BAYASPIRIN [Suspect]
     Active Substance: ASPIRIN
     Dosage: 100 MG, DAILY DOSE
     Route: 048
     Dates: start: 20171031
  12. HARNAL [Concomitant]
     Active Substance: TAMSULOSIN HYDROCHLORIDE
     Indication: PRODUCT USED FOR UNKNOWN INDICATION
     Dosage: 0.2 MG, DAILY DOSE
     Route: 048
  13. ATARAX-P [Concomitant]
     Active Substance: HYDROXYZINE HYDROCHLORIDE
     Indication: PRODUCT USED FOR UNKNOWN INDICATION
     Dosage: 25 MG, DAILY DOSE
     Route: 048

REACTIONS (1)
  - Gastric ulcer haemorrhage [Recovered/Resolved]
